FAERS Safety Report 10966896 (Version 1)
Quarter: 2015Q1

REPORT INFORMATION
  Report Type: Spontaneous
  Country: US (occurrence: US)
  Receive Date: 20150330
  Receipt Date: 20150330
  Transmission Date: 20150721
  Serious: No
  Sender: FDA-Public Use
  Company Number: US-TEVA-528187USA

PATIENT
  Age: 51 Year
  Sex: Male

DRUGS (6)
  1. LISINOPRIL. [Concomitant]
     Active Substance: LISINOPRIL
     Dosage: 20MG DAILY
     Route: 065
  2. CYCLOBENZAPRINE [Concomitant]
     Active Substance: CYCLOBENZAPRINE
     Dosage: 10MG 2 TIMES DAILY AS NEEDED
     Route: 065
  3. TADALAFIL [Concomitant]
     Active Substance: TADALAFIL
     Dosage: 5MG ONCE DAILY AS NEEDED
     Route: 065
  4. WARFARIN [Suspect]
     Active Substance: WARFARIN
     Indication: DEEP VEIN THROMBOSIS
     Dosage: 30MG WEEKLY
     Route: 065
  5. SALBUTAMOL [Concomitant]
     Active Substance: ALBUTEROL
     Dosage: 1 PUFF EVERY 4 HOURS AS NEEDED
     Route: 055
  6. PHENYTOIN. [Interacting]
     Active Substance: PHENYTOIN
     Indication: SEIZURE
     Route: 048

REACTIONS (2)
  - Anticoagulation drug level below therapeutic [Recovered/Resolved]
  - Drug interaction [Recovered/Resolved]
